FAERS Safety Report 17012886 (Version 1)
Quarter: 2019Q4

REPORT INFORMATION
  Report Type: Spontaneous
  Country: CN (occurrence: CN)
  Receive Date: 20191109
  Receipt Date: 20191109
  Transmission Date: 20200122
  Serious: Yes (Hospitalization, Other)
  Sender: FDA-Public Use
  Company Number: CN-BRISTOL-MYERS SQUIBB COMPANY-BMS-2019-105179

PATIENT
  Age: 66 Year
  Sex: Male
  Weight: 78 kg

DRUGS (2)
  1. NIVOLUMAB [Suspect]
     Active Substance: NIVOLUMAB
     Indication: LUNG NEOPLASM MALIGNANT
     Dosage: 240 MILLIGRAM
     Route: 041
     Dates: start: 20190927, end: 20191022
  2. NORMAL SALINE [Concomitant]
     Active Substance: SODIUM CHLORIDE
     Indication: LUNG NEOPLASM MALIGNANT
     Dosage: 100 MILLILITER
     Route: 041
     Dates: start: 20190927, end: 20191022

REACTIONS (1)
  - Thrombocytopenia [Recovering/Resolving]

NARRATIVE: CASE EVENT DATE: 20191026
